FAERS Safety Report 7098502-5 (Version None)
Quarter: 2010Q4

REPORT INFORMATION
  Report Type: 
  Country: None (occurrence: None)
  Receive Date: 20101112
  Receipt Date: 20101101
  Transmission Date: 20110411
  Serious: Yes (Other)
  Sender: FDA-Public Use
  Company Number: CZ-BAYER-201043086GPV

PATIENT
  Age: 52 Year
  Sex: Male

DRUGS (6)
  1. NEXAVAR [Suspect]
     Indication: RENAL CELL CARCINOMA
     Dosage: TOTAL DAILY DOSE: 800 MG  UNIT DOSE: 200 MG
     Route: 048
     Dates: start: 20090911, end: 20100103
  2. NEXAVAR [Suspect]
     Dosage: TOTAL DAILY DOSE: 400 MG  UNIT DOSE: 200 MG
     Route: 048
     Dates: start: 20100409, end: 20100901
  3. MILURIT [Concomitant]
     Dosage: TOTAL DAILY DOSE: 100 MG
     Route: 048
  4. SUPRELIP [Concomitant]
     Dosage: TOTAL DAILY DOSE: 200 MG
  5. INHIBACE [Concomitant]
  6. ATIFERRIN / IRON IN COMBINATIONS [Concomitant]

REACTIONS (5)
  - ANTI-HBC ANTIBODY POSITIVE [None]
  - FATIGUE [None]
  - JAUNDICE [None]
  - LIVER FUNCTION TEST ABNORMAL [None]
  - WEIGHT DECREASED [None]
